FAERS Safety Report 9229024 (Version 1)
Quarter: 2013Q2

REPORT INFORMATION
  Report Type: Spontaneous
  Country: US (occurrence: US)
  Receive Date: 20130412
  Receipt Date: 20130412
  Transmission Date: 20140414
  Serious: Yes (Other)
  Sender: FDA-Public Use
  Company Number: US-US-EMD SERONO, INC.-7068096

PATIENT
  Age: 9 Year
  Sex: Male

DRUGS (1)
  1. SAIZEN [(SOMATROPIN (RDNA ORIGIN) FOR INJECTION)] [Suspect]
     Indication: GROWTH RETARDATION
     Dates: start: 20101110

REACTIONS (7)
  - Mitochondrial cytopathy [Unknown]
  - Yellow skin [Not Recovered/Not Resolved]
  - Lethargy [Unknown]
  - Fall [Unknown]
  - Muscular weakness [Not Recovered/Not Resolved]
  - Weight gain poor [Not Recovered/Not Resolved]
  - Arthralgia [Recovering/Resolving]
